FAERS Safety Report 15013040 (Version 1)
Quarter: 2018Q2

REPORT INFORMATION
  Report Type: Spontaneous
  Country: FR (occurrence: FR)
  Receive Date: 20180614
  Receipt Date: 20180614
  Transmission Date: 20180711
  Serious: Yes (Other)
  Sender: FDA-Public Use
  Company Number: FR-SA-2018SA149023

PATIENT
  Age: 67 Year
  Sex: Female

DRUGS (7)
  1. IRBESARTAN. [Concomitant]
     Active Substance: IRBESARTAN
  2. LEVOTHYROX [Concomitant]
     Active Substance: LEVOTHYROXINE
     Dosage: 150 UG, QD
  3. ORCAL [Concomitant]
  4. LOVENOX [Suspect]
     Active Substance: ENOXAPARIN SODIUM
     Indication: PROPHYLAXIS
     Dosage: 0.45 U, QD
     Dates: start: 20180315, end: 20180429
  5. LERCANIDIPINE [Concomitant]
     Active Substance: LERCANIDIPINE
  6. LOVENOX [Suspect]
     Active Substance: ENOXAPARIN SODIUM
     Dosage: 0.70 U, BID
     Dates: start: 20180430
  7. ATORVASTATINE [ATORVASTATIN] [Concomitant]

REACTIONS (3)
  - Thrombophlebitis [Unknown]
  - Deep vein thrombosis [Unknown]
  - Blood thyroid stimulating hormone increased [Not Recovered/Not Resolved]

NARRATIVE: CASE EVENT DATE: 20180429
